FAERS Safety Report 19036755 (Version 1)
Quarter: 2021Q1

REPORT INFORMATION
  Report Type: Spontaneous
  Country: US (occurrence: US)
  Receive Date: 20210320
  Receipt Date: 20210320
  Transmission Date: 20210420
  Serious: Yes (Hospitalization)
  Sender: FDA-Public Use
  Company Number: None

PATIENT
  Age: 41 Year
  Sex: Female
  Weight: 84.3 kg

DRUGS (2)
  1. STEREOTACTIC BODY RADIATION THERAPY [Suspect]
     Active Substance: RADIATION THERAPY
     Indication: CERVIX CARCINOMA
     Dates: start: 20210113, end: 20210119
  2. ATEZOLIZUMAB. [Suspect]
     Active Substance: ATEZOLIZUMAB

REACTIONS (7)
  - Abdominal pain [None]
  - Oedema [None]
  - Oedema peripheral [None]
  - Asthenia [None]
  - Haemoglobin decreased [None]
  - Gait disturbance [None]
  - Back pain [None]

NARRATIVE: CASE EVENT DATE: 20210318
